FAERS Safety Report 14650821 (Version 2)
Quarter: 2018Q2

REPORT INFORMATION
  Report Type: Report from Study
  Country: US (occurrence: US)
  Receive Date: 20180316
  Receipt Date: 20180426
  Transmission Date: 20180711
  Serious: Yes (Hospitalization, Other)
  Sender: FDA-Public Use
  Company Number: US-ACTELION-A-NJ2018-169172

PATIENT
  Age: 70 Year
  Sex: Female

DRUGS (13)
  1. TRACLEER [Suspect]
     Active Substance: BOSENTAN
     Indication: PULMONARY ARTERIAL HYPERTENSION
     Dosage: 62.5 MG, UNK
     Route: 048
     Dates: start: 20120830
  2. PREMARIN [Concomitant]
     Active Substance: ESTROGENS, CONJUGATED
  3. COUMADIN [Concomitant]
     Active Substance: WARFARIN SODIUM
     Dosage: 4 MG, UNK
  4. GLUMETZA [Concomitant]
     Active Substance: METFORMIN HYDROCHLORIDE
     Dosage: 1000 MG, UNK
  5. PRAVACHOL [Concomitant]
     Active Substance: PRAVASTATIN SODIUM
     Dosage: 20 MG, UNK
  6. ADCIRCA [Concomitant]
     Active Substance: TADALAFIL
     Dosage: 20 MG, UNK
  7. TRACLEER [Suspect]
     Active Substance: BOSENTAN
     Dosage: 125 MG, BID
     Route: 048
  8. ARIMIDEX [Concomitant]
     Active Substance: ANASTROZOLE
     Dosage: 1 MG, UNK
  9. NORVASC [Concomitant]
     Active Substance: AMLODIPINE BESYLATE
     Dosage: 10 MG, UNK
  10. CALCIUM/VITAMIN D3 [Concomitant]
  11. AMARYL [Concomitant]
     Active Substance: GLIMEPIRIDE
     Dosage: 1 MG, UNK
  12. EQUATE WOMEN^S 50 PLUS ONE DAILY [Concomitant]
  13. JANUVIA [Concomitant]
     Active Substance: SITAGLIPTIN PHOSPHATE
     Dosage: 100 MG, UNK

REACTIONS (2)
  - Dyspnoea exertional [Unknown]
  - Breast cancer [Recovered/Resolved]

NARRATIVE: CASE EVENT DATE: 20180309
